FAERS Safety Report 8794619 (Version 2)
Quarter: 2012Q4

REPORT INFORMATION
  Report Type: 
  Country: US (occurrence: US)
  Receive Date: 20120917
  Receipt Date: 20121009
  Transmission Date: 20130627
  Serious: No
  Sender: FDA-Public Use
  Company Number: US-VERTEX PHARMACEUTICAL INC.-2012-019903

PATIENT
  Sex: Male
  Weight: 113 kg

DRUGS (3)
  1. VX-950 [Suspect]
     Indication: HEPATITIS C
     Dosage: 750 mg, UNK
     Route: 048
     Dates: start: 20120808
  2. RIBAPAK [Suspect]
     Indication: HEPATITIS C
     Dosage: 600 mg, UNK
     Route: 048
     Dates: start: 20120808
  3. PEGASYS [Suspect]
     Indication: HEPATITIS C
     Dosage: 180 ?g, UNK
     Route: 058
     Dates: start: 20120808

REACTIONS (5)
  - Dyspnoea [Unknown]
  - Fatigue [Unknown]
  - Rash generalised [Unknown]
  - Anorectal discomfort [Unknown]
  - Pruritus generalised [Unknown]
